FAERS Safety Report 5060866-1 (Version None)
Quarter: 2006Q2

REPORT INFORMATION
  Report Type: 
  Country: None (occurrence: None)
  Receive Date: 20060630
  Receipt Date: 20050712
  Transmission Date: 20061013
  Serious: Yes (Hospitalization)
  Sender: FDA-Public Use
  Company Number: 410532

PATIENT
  Age: 46 Year
  Sex: Female

DRUGS (4)
  1. MYCOPHENOLATE MOFETIL [Suspect]
     Indication: DERMATOMYOSITIS
     Dosage: 1 GRAM 2 PER DAY ORAL
     Route: 048
     Dates: start: 19990715, end: 20000815
  2. PREDNISONE TAB [Suspect]
     Indication: DERMATOMYOSITIS
     Dosage: 40 MG DAILY ORAL
     Route: 048
     Dates: start: 19990715, end: 19990715
  3. METHOTREXATE [Suspect]
     Indication: DERMATOMYOSITIS
     Dosage: 35 MG 1 PER WEEK ORAL
     Route: 048
     Dates: start: 19960315, end: 19990715
  4. HYDROCORTISONE 1% (HYDROCORTISONE) [Concomitant]

REACTIONS (1)
  - B-CELL LYMPHOMA [None]
